FAERS Safety Report 5757075-7 (Version None)
Quarter: 2008Q2

REPORT INFORMATION
  Report Type: 
  Country: None (occurrence: None)
  Receive Date: 20080603
  Receipt Date: 20080521
  Transmission Date: 20081010
  Serious: Yes (Hospitalization)
  Sender: FDA-Public Use
  Company Number: B0522341A

PATIENT
  Age: 36 Year
  Sex: Female

DRUGS (2)
  1. MALARONE [Suspect]
     Indication: PLASMODIUM FALCIPARUM INFECTION
     Dosage: 4TAB PER DAY
     Route: 048
     Dates: start: 20080315, end: 20080317
  2. IVERMECTIN [Suspect]
     Dosage: 3MG PER DAY
     Route: 048
     Dates: start: 20080315, end: 20080317

REACTIONS (7)
  - ANAEMIA MEGALOBLASTIC [None]
  - ASTHENIA [None]
  - EPISTAXIS [None]
  - HAEMORRHAGE [None]
  - NAUSEA [None]
  - PANCYTOPENIA [None]
  - VOMITING [None]
